FAERS Safety Report 8543237-2 (Version None)
Quarter: 2012Q3

REPORT INFORMATION
  Report Type: 
  Country: None (occurrence: None)
  Receive Date: 20120716
  Receipt Date: 20120707
  Transmission Date: 20120928
  Serious: Yes (Hospitalization)
  Sender: FDA-Public Use
  Company Number: 2012ST000526

PATIENT
  Age: 63 Year
  Sex: Male
  Weight: 102.0593 kg

DRUGS (8)
  1. OSTEO BI-FLEX [Concomitant]
  2. METFORMIN HYDROCHLORIDE [Concomitant]
  3. COUMADIN [Concomitant]
  4. ACETAMINOPHEN AND HYDROCODONE BITARTRATE [Concomitant]
  5. CARVEDILOL [Concomitant]
  6. LISINOPRIL [Concomitant]
  7. OMEPRAZOLE [Concomitant]
  8. MATULANE [Suspect]
     Indication: NON-HODGKIN'S LYMPHOMA
     Dosage: 100 MG;QD;PO
     Route: 048
     Dates: start: 20120611

REACTIONS (24)
  - POST PROCEDURAL COMPLICATION [None]
  - CHILLS [None]
  - NIGHT SWEATS [None]
  - ASTHENIA [None]
  - WEIGHT DECREASED [None]
  - ACUTE RESPIRATORY FAILURE [None]
  - FALL [None]
  - DECREASED APPETITE [None]
  - EMPYEMA [None]
  - FLUID OVERLOAD [None]
  - HAEMORRHAGIC ANAEMIA [None]
  - PYREXIA [None]
  - DISEASE RECURRENCE [None]
  - LEUKOPENIA [None]
  - HYPOTENSION [None]
  - SEPSIS [None]
  - OEDEMA PERIPHERAL [None]
  - THROMBOCYTOPENIA [None]
  - PLEURAL EFFUSION [None]
  - RENAL FAILURE [None]
  - STREPTOCOCCUS TEST POSITIVE [None]
  - ROTATOR CUFF SYNDROME [None]
  - DEEP VEIN THROMBOSIS [None]
  - HAEMOTHORAX [None]
